FAERS Safety Report 8676492 (Version 2)
Quarter: 2013Q4

REPORT INFORMATION
  Report Type: Spontaneous
  Country: FR (occurrence: FR)
  Receive Date: 20120720
  Receipt Date: 20131106
  Transmission Date: 20140711
  Serious: Yes (Hospitalization)
  Sender: FDA-Public Use
  Company Number: FR-009507513-1206FRA00133

PATIENT
  Age: 65 Year
  Sex: Male

DRUGS (6)
  1. XELEVIA [Suspect]
     Dosage: 100 MG, QD
     Route: 048
     Dates: start: 201110, end: 20120416
  2. METFORMIN [Concomitant]
     Dosage: 500 MG, TID
     Route: 048
  3. INEXIUM [Concomitant]
  4. GAVISCON (ALGINIC ACID (+) ALUMINUM HYDROXIDE (+) MAGNESIUM TRISILICAT [Concomitant]
  5. VENTOLINE (ALBUTEROL) [Concomitant]
  6. COOLMETEC [Concomitant]

REACTIONS (3)
  - Pemphigoid [Recovered/Resolved]
  - Eosinophilia [Recovered/Resolved]
  - Pruritus [Recovered/Resolved]
